FAERS Safety Report 11980313 (Version 5)
Quarter: 2016Q3

REPORT INFORMATION
  Report Type: Spontaneous
  Country: US (occurrence: US)
  Receive Date: 20160129
  Receipt Date: 20160805
  Transmission Date: 20161109
  Serious: No
  Sender: FDA-Public Use
  Company Number: US-PFIZER INC-2016028188

PATIENT
  Age: 77 Year
  Sex: Female

DRUGS (5)
  1. LETROZOLE. [Suspect]
     Active Substance: LETROZOLE
     Dosage: 2.5 MG, UNK
     Dates: start: 20160110
  2. LETROZOLE. [Suspect]
     Active Substance: LETROZOLE
     Dosage: 2.5 MG, UNK
     Dates: start: 20160119
  3. IBRANCE [Suspect]
     Active Substance: PALBOCICLIB
     Dosage: 125 MG, UNK
     Dates: start: 20160110
  4. IBRANCE [Suspect]
     Active Substance: PALBOCICLIB
     Dosage: 125 MG, UNK
     Dates: start: 20160119
  5. IBRANCE [Suspect]
     Active Substance: PALBOCICLIB
     Dosage: 125 MG, UNK
     Dates: start: 20160116

REACTIONS (14)
  - Malaise [Unknown]
  - Cough [Unknown]
  - Constipation [Unknown]
  - Nasopharyngitis [Unknown]
  - Pruritus generalised [Unknown]
  - Vision blurred [Unknown]
  - Rash pruritic [Unknown]
  - Nausea [Unknown]
  - Hypersensitivity [Unknown]
  - Urinary tract infection [Unknown]
  - Pollakiuria [Unknown]
  - Insomnia [Unknown]
  - Dry skin [Unknown]
  - Vomiting [Unknown]
